FAERS Safety Report 5047720-6 (Version None)
Quarter: 2006Q3

REPORT INFORMATION
  Report Type: 
  Country: None (occurrence: None)
  Receive Date: 20060710
  Receipt Date: 20060710
  Transmission Date: 20061208
  Serious: Yes (Other)
  Sender: FDA-Public Use
  Company Number: None

PATIENT
  Age: 83 Year
  Sex: Female
  Weight: 61.2356 kg

DRUGS (13)
  1. WARFARIN SODIUM [Suspect]
     Indication: THROMBOSIS PROPHYLAXIS
     Dosage: SEE IMAGE
  2. THEO-DUR [Concomitant]
  3. ALLOPURINOL [Concomitant]
  4. CANDESARTAN [Concomitant]
  5. DOCUSATE [Concomitant]
  6. FESO4 [Concomitant]
  7. METOPROLOL [Concomitant]
  8. AMLODIPINE [Concomitant]
  9. DILTIAZEM HCL [Concomitant]
  10. MORPHINE [Concomitant]
  11. HYDROCODONE [Concomitant]
  12. ONDANSETRON HCL [Concomitant]
  13. ASPIRIN [Concomitant]

REACTIONS (2)
  - INTERNATIONAL NORMALISED RATIO INCREASED [None]
  - PROTHROMBIN TIME PROLONGED [None]
